FAERS Safety Report 25058401 (Version 2)
Quarter: 2025Q1

REPORT INFORMATION
  Report Type: Spontaneous
  Country: US (occurrence: US)
  Receive Date: 20250310
  Receipt Date: 20250313
  Transmission Date: 20250409
  Serious: No
  Sender: PFIZER
  Company Number: US-PFIZER INC-202500051327

PATIENT
  Age: 1 Year
  Sex: Male
  Weight: 12.7 kg

DRUGS (1)
  1. SOMATROPIN [Suspect]
     Active Substance: SOMATROPIN
     Indication: Growth hormone deficiency
     Dosage: 0.4MG ONCE A DAY AT NIGHT BY INJECTION
     Dates: start: 202502

REACTIONS (3)
  - Injection site bruising [Unknown]
  - Injection site discomfort [Unknown]
  - Injection site haemorrhage [Unknown]

NARRATIVE: CASE EVENT DATE: 20250201
